FAERS Safety Report 9744049 (Version 1)
Quarter: 2013Q4

REPORT INFORMATION
  Report Type: Spontaneous
  Country: US (occurrence: US)
  Receive Date: 20131210
  Receipt Date: 20131210
  Transmission Date: 20140711
  Serious: Yes (Other)
  Sender: FDA-Public Use
  Company Number: US-GLAXOSMITHKLINE-A1052915A

PATIENT
  Sex: Female

DRUGS (3)
  1. ADVAIR [Suspect]
     Indication: CHRONIC OBSTRUCTIVE PULMONARY DISEASE
     Route: 055
     Dates: start: 20130814
  2. VENTOLIN [Suspect]
     Indication: CHRONIC OBSTRUCTIVE PULMONARY DISEASE
     Dosage: 90MCG UNKNOWN
     Route: 055
     Dates: start: 20120816
  3. BLOOD PRESSURE MEDICATION [Concomitant]

REACTIONS (7)
  - Skin cancer [Unknown]
  - Cerebrovascular accident [Unknown]
  - Adverse event [Unknown]
  - Injury [Unknown]
  - Anxiety [Unknown]
  - Inhalation therapy [Unknown]
  - Off label use [Unknown]
